FAERS Safety Report 5201353-7 (Version None)
Quarter: 2007Q1

REPORT INFORMATION
  Report Type: 
  Country: None (occurrence: None)
  Receive Date: 20070104
  Receipt Date: 20061228
  Transmission Date: 20070707
  Serious: Yes (Hospitalization)
  Sender: FDA-Public Use
  Company Number: 232346

PATIENT
  Age: 87 Year
  Sex: Female

DRUGS (7)
  1. LUCENTIS [Suspect]
     Indication: MACULAR DEGENERATION
     Dosage: INTRAVITREAL
     Dates: start: 20061009
  2. HEART MEDICATION (CARDIAC MEDICATION NOS) [Concomitant]
  3. ANTIHYPERTENSIVE MEDICATION NOS (ANTIHYPERTENSIVE NOS) [Concomitant]
  4. EYE DROPS NOS (EYE DROPS NOS) [Concomitant]
  5. FLONASE [Concomitant]
  6. ALLERGY MEDICATION (ALLERGY MEDICATION NOS) [Concomitant]
  7. FLU SHOT (INFLUENZA VIRUS VACCINE) [Concomitant]

REACTIONS (10)
  - AGEUSIA [None]
  - ANOREXIA [None]
  - ANOSMIA [None]
  - EAR PAIN [None]
  - HYPERSENSITIVITY [None]
  - NASOPHARYNGITIS [None]
  - RESPIRATORY TRACT CONGESTION [None]
  - SINUS DISORDER [None]
  - TINNITUS [None]
  - WEIGHT DECREASED [None]
